FAERS Safety Report 6640098-3 (Version None)
Quarter: 2010Q1

REPORT INFORMATION
  Report Type: 
  Country: None (occurrence: None)
  Receive Date: 20100318
  Receipt Date: 20100309
  Transmission Date: 20100710
  Serious: Yes (Other)
  Sender: FDA-Public Use
  Company Number: CA-AMGEN-KDL398488

PATIENT
  Age: 55 Year
  Sex: Male

DRUGS (15)
  1. ARANESP [Suspect]
     Indication: DRUG USE FOR UNKNOWN INDICATION
     Route: 058
  2. CALCIUM [Concomitant]
  3. CELLCEPT [Concomitant]
  4. HYDROCHLOROTHIAZIDE [Concomitant]
  5. HUMALOG [Concomitant]
     Route: 058
  6. HYTRIN [Concomitant]
     Route: 048
  7. LIPITOR [Concomitant]
     Route: 048
  8. LOPRESSOR [Concomitant]
  9. MAGNESIUM GLUCONATE [Concomitant]
     Route: 048
  10. NORVASC [Concomitant]
     Route: 048
  11. PREDNISONE [Concomitant]
  12. PROGRAF [Concomitant]
  13. RENAGEL [Concomitant]
  14. ROCALTROL [Concomitant]
  15. VITAMIN B-12 [Concomitant]

REACTIONS (3)
  - ERYTHEMA [None]
  - FACE OEDEMA [None]
  - LOCALISED OEDEMA [None]
